FAERS Safety Report 4428575-7 (Version None)
Quarter: 2004Q3

REPORT INFORMATION
  Report Type: 
  Country: None (occurrence: None)
  Receive Date: 20040811
  Receipt Date: 20040727
  Transmission Date: 20050211
  Serious: Yes (Death)
  Sender: FDA-Public Use
  Company Number: THYM-10251

PATIENT
  Age: 48 Year
  Sex: Male
  Weight: 98.5 kg

DRUGS (8)
  1. THYMOGLOBULIN [Suspect]
     Indication: PROPHYLAXIS AGAINST TRANSPLANT REJECTION
     Dosage: 150 MG QD IV
     Route: 042
     Dates: start: 20040721, end: 20040721
  2. APROTONIN [Concomitant]
  3. VANCOMYCIN [Concomitant]
  4. FENTANYL [Concomitant]
  5. LASIX [Concomitant]
  6. UNSPECIFIED ANESTHETICS [Concomitant]
  7. BENADRYL [Concomitant]
  8. PEPCID [Concomitant]

REACTIONS (9)
  - ENDOTOXIC SHOCK [None]
  - FLUSHING [None]
  - HEPATIC FAILURE [None]
  - HYPOTENSION [None]
  - LUNG INFECTION PSEUDOMONAL [None]
  - PHARMACEUTICAL PRODUCT COMPLAINT [None]
  - PNEUMONIA NECROTISING [None]
  - RENAL FAILURE [None]
  - RESPIRATORY FAILURE [None]
